FAERS Safety Report 8418418 (Version 15)
Quarter: 2015Q2

REPORT INFORMATION
  Report Type: Report from Study
  Country: US (occurrence: US)
  Receive Date: 20120221
  Receipt Date: 20150609
  Transmission Date: 20150821
  Serious: Yes (Other)
  Sender: FDA-Public Use
  Company Number: US-ROCHE-1037944

PATIENT
  Age: 57 Year
  Sex: Male

DRUGS (44)
  1. VEMURAFENIB [Suspect]
     Active Substance: VEMURAFENIB
     Indication: PAPILLARY THYROID CANCER
     Dosage: LAST DOSE PROIR TO SAE ON 19/JUN/2012, 18/JAN/212
     Route: 048
     Dates: start: 20111027
  2. METHYLCELLULOSE [Concomitant]
     Active Substance: METHYLCELLULOSES
     Indication: CONSTIPATION
     Dosage: 1 TEASPOON AS NEEDED
     Route: 048
     Dates: start: 20120625
  3. AMMONIUM LACTATE. [Concomitant]
     Active Substance: AMMONIUM LACTATE
     Route: 065
     Dates: start: 20111117, end: 20111221
  4. SIMVASTATIN. [Concomitant]
     Active Substance: SIMVASTATIN
     Route: 048
     Dates: start: 20120802
  5. HYDROCHLOROTHIAZIDE/TRIAMTERENE [Concomitant]
     Active Substance: HYDROCHLOROTHIAZIDE\TRIAMTERENE
     Indication: HYPERTENSION
     Dosage: 25/37.5 MG
     Route: 048
     Dates: start: 20120616, end: 20120705
  6. DUREZOL [Concomitant]
     Active Substance: DIFLUPREDNATE
     Indication: UVEITIS
     Dosage: 1 DROP
     Route: 061
     Dates: start: 20140430, end: 20140616
  7. DIAZEPAM. [Concomitant]
     Active Substance: DIAZEPAM
     Indication: BACK PAIN
     Route: 048
     Dates: start: 20111020, end: 20120617
  8. AMMONIUM LACTATE. [Concomitant]
     Active Substance: AMMONIUM LACTATE
     Indication: PALMAR-PLANTAR ERYTHRODYSAESTHESIA SYNDROME
     Route: 065
     Dates: start: 20111020
  9. GUAIFENESIN. [Concomitant]
     Active Substance: GUAIFENESIN
     Indication: PRODUCTIVE COUGH
     Route: 048
     Dates: start: 20120315
  10. LEVOFLOXACIN. [Concomitant]
     Active Substance: LEVOFLOXACIN
     Indication: PRODUCTIVE COUGH
     Route: 048
     Dates: start: 20120409, end: 20120413
  11. FUROSEMIDE. [Concomitant]
     Active Substance: FUROSEMIDE
     Indication: HYPERTENSION
     Route: 048
     Dates: start: 20120623
  12. DILTIAZEM [Concomitant]
     Active Substance: DILTIAZEM
     Indication: HYPERTENSION
     Route: 048
     Dates: start: 20120623
  13. TRIAMCINOLONE [Concomitant]
     Active Substance: TRIAMCINOLONE
     Indication: LOCALISED OEDEMA
     Route: 065
     Dates: start: 20120607
  14. CEFTIN (UNITED STATES) [Concomitant]
     Route: 048
     Dates: start: 20121005, end: 20121013
  15. AMLODIPINE [Concomitant]
     Active Substance: AMLODIPINE BESYLATE
     Route: 048
     Dates: start: 20120618, end: 20120619
  16. METOCLOPRAMIDE. [Concomitant]
     Active Substance: METOCLOPRAMIDE
     Indication: VOMITING
     Route: 048
     Dates: start: 20120101, end: 20121123
  17. LEVOFLOXACIN. [Concomitant]
     Active Substance: LEVOFLOXACIN
     Route: 048
     Dates: start: 20130126, end: 20130204
  18. AMOXICILLIN/CLAVULANIC ACID [Concomitant]
     Active Substance: AMOXICILLIN\CLAVULANIC ACID
     Indication: PRODUCTIVE COUGH
     Route: 048
     Dates: start: 20120815, end: 20120819
  19. CEFUROXIME. [Concomitant]
     Active Substance: CEFUROXIME
     Route: 048
     Dates: start: 20140624, end: 20140704
  20. BROMFENAC [Concomitant]
     Active Substance: BROMFENAC\BROMFENAC SODIUM
     Indication: UVEITIS
     Dosage: 1 DROP
     Route: 061
     Dates: start: 20140430
  21. AMLODIPINE [Concomitant]
     Active Substance: AMLODIPINE BESYLATE
     Indication: HYPERTENSION
     Route: 048
     Dates: start: 20110916, end: 20111120
  22. AMLODIPINE [Concomitant]
     Active Substance: AMLODIPINE BESYLATE
     Route: 048
     Dates: start: 20120629, end: 20120705
  23. AMMONIUM LACTATE. [Concomitant]
     Active Substance: AMMONIUM LACTATE
     Route: 061
     Dates: start: 20111222
  24. AMOXICILLIN/CLAVULANIC ACID [Concomitant]
     Active Substance: AMOXICILLIN\CLAVULANIC ACID
     Route: 048
     Dates: start: 20121017, end: 20121023
  25. CEFTIN (UNITED STATES) [Concomitant]
     Indication: PRODUCTIVE COUGH
     Route: 048
     Dates: start: 20120912, end: 20120912
  26. CICLOPIROX. [Concomitant]
     Active Substance: CICLOPIROX
     Indication: NAIL INFECTION
     Dosage: 1 APPLICATION
     Route: 065
     Dates: start: 20120607
  27. PREDNISONE. [Concomitant]
     Active Substance: PREDNISONE
     Route: 065
     Dates: start: 20131205
  28. TRIAMCINOLONE [Concomitant]
     Active Substance: TRIAMCINOLONE
     Indication: CONJUNCTIVITIS
     Dosage: 1 APPLICATION
     Route: 061
     Dates: start: 20130509, end: 20131023
  29. LEVAQUIN [Concomitant]
     Active Substance: LEVOFLOXACIN
     Indication: UPPER RESPIRATORY TRACT INFECTION
     Route: 048
     Dates: start: 20131220, end: 20140101
  30. PSYLLIUM [Concomitant]
     Active Substance: PLANTAGO SEED
     Indication: CONSTIPATION
     Route: 048
     Dates: start: 20110916
  31. CICLOPIROX. [Concomitant]
     Active Substance: CICLOPIROX
     Indication: TINEA CRURIS
     Dosage: 1 APPLICATION
     Route: 065
     Dates: start: 20111020
  32. LEVOFLOXACIN. [Concomitant]
     Active Substance: LEVOFLOXACIN
     Route: 048
     Dates: start: 20121024, end: 20121102
  33. POTASSIUM CHLORIDE. [Concomitant]
     Active Substance: POTASSIUM CHLORIDE
     Indication: DYSPNOEA
     Dosage: 20 MILIEQUIVALENT
     Route: 048
     Dates: start: 20120623
  34. LEVOTHYROXINE SODIUM. [Concomitant]
     Active Substance: LEVOTHYROXINE SODIUM
     Indication: HYPOTHYROIDISM
     Route: 048
     Dates: start: 20100305
  35. AMLODIPINE [Concomitant]
     Active Substance: AMLODIPINE BESYLATE
     Route: 048
     Dates: start: 20111121, end: 20120617
  36. METOCLOPRAMIDE. [Concomitant]
     Active Substance: METOCLOPRAMIDE
     Indication: NAUSEA
     Route: 048
     Dates: start: 20111020
  37. AZITHROMYCIN [Concomitant]
     Active Substance: AZITHROMYCIN ANHYDROUS
     Indication: COUGH
     Route: 065
     Dates: start: 20111128
  38. FUROSEMIDE. [Concomitant]
     Active Substance: FUROSEMIDE
     Indication: DYSPNOEA
     Dosage: AS NEEDED
     Route: 048
     Dates: start: 20120619, end: 20120623
  39. ASPIRIN. [Concomitant]
     Active Substance: ASPIRIN
     Indication: PROPHYLAXIS
     Route: 048
     Dates: start: 20120623, end: 20121105
  40. SALICYLIC ACID. [Concomitant]
     Active Substance: SALICYLIC ACID
     Indication: LOCALISED OEDEMA
     Dosage: AS NEEDED,
     Route: 065
     Dates: start: 20120607
  41. CEFUROXIME. [Concomitant]
     Active Substance: CEFUROXIME
     Indication: UPPER RESPIRATORY TRACT INFECTION
     Route: 048
     Dates: start: 20131209, end: 20131219
  42. PREDNISONE. [Concomitant]
     Active Substance: PREDNISONE
     Indication: CONJUNCTIVITIS
     Dosage: 6X DAY UNTIL 1/27, THEN 4X UNTIL 2/16, THEN 3X A DAY FOR ONE WEEK THEN 2X A DAY FOR 1 WEEK AND 1X A
     Route: 065
     Dates: start: 20120120
  43. ALBUTEROL. [Concomitant]
     Active Substance: ALBUTEROL
  44. SIMBRINZA [Concomitant]
     Active Substance: BRIMONIDINE TARTRATE\BRINZOLAMIDE
     Indication: UVEITIS
     Dosage: 1 DROP
     Route: 065
     Dates: start: 20140616

REACTIONS (2)
  - Malignant melanoma [Recovered/Resolved with Sequelae]
  - Papillary thyroid cancer [Recovered/Resolved with Sequelae]

NARRATIVE: CASE EVENT DATE: 20120119
